FAERS Safety Report 20864116 (Version 1)
Quarter: 2022Q2

REPORT INFORMATION
  Report Type: Spontaneous
  Country: IN (occurrence: IN)
  Receive Date: 20220523
  Receipt Date: 20220523
  Transmission Date: 20220720
  Serious: Yes (Other)
  Sender: FDA-Public Use
  Company Number: IN-JNJFOC-20220543705

PATIENT
  Sex: Male

DRUGS (3)
  1. INVEGA SUSTENNA [Suspect]
     Active Substance: PALIPERIDONE PALMITATE
     Indication: Schizophrenia
     Route: 030
  2. INVEGA SUSTENNA [Suspect]
     Active Substance: PALIPERIDONE PALMITATE
  3. INVEGA SUSTENNA [Suspect]
     Active Substance: PALIPERIDONE PALMITATE

REACTIONS (8)
  - Mental impairment [Unknown]
  - Diabetes mellitus [Unknown]
  - Bone disorder [Unknown]
  - Dental caries [Unknown]
  - Blood cholesterol abnormal [Unknown]
  - Memory impairment [Unknown]
  - Alopecia [Unknown]
  - Skin discolouration [Unknown]
